FAERS Safety Report 6116704-9 (Version None)
Quarter: 2009Q1

REPORT INFORMATION
  Report Type: 
  Country: None (occurrence: None)
  Receive Date: 20090314
  Receipt Date: 20081208
  Transmission Date: 20090719
  Serious: No
  Sender: FDA-Public Use
  Company Number: US-ABBOTT-08P-163-0491654-00

PATIENT
  Sex: Male
  Weight: 93.07 kg

DRUGS (6)
  1. HUMIRA [Suspect]
     Indication: CROHN'S DISEASE
     Route: 058
     Dates: start: 20020101, end: 20020101
  2. HUMIRA [Suspect]
     Indication: PSORIASIS
     Route: 058
     Dates: start: 20020101, end: 20020101
  3. HUMIRA [Suspect]
     Route: 058
     Dates: start: 20020101, end: 20080901
  4. HUMIRA [Suspect]
     Route: 058
     Dates: start: 20081205, end: 20081207
  5. HUMIRA [Suspect]
  6. SULFASALAZINE [Concomitant]
     Indication: ANTIINFLAMMATORY THERAPY
     Dates: start: 19950101

REACTIONS (9)
  - BRONCHITIS [None]
  - CHEST PAIN [None]
  - DEHYDRATION [None]
  - EPISTAXIS [None]
  - INFLUENZA LIKE ILLNESS [None]
  - NASAL DRYNESS [None]
  - NASAL ULCER [None]
  - UPPER RESPIRATORY TRACT INFECTION [None]
  - VIRAL INFECTION [None]
